FAERS Safety Report 4782392-7 (Version None)
Quarter: 2005Q3

REPORT INFORMATION
  Report Type: 
  Country: None (occurrence: None)
  Receive Date: 20050914
  Receipt Date: 20050706
  Transmission Date: 20060218
  Serious: Yes (Other)
  Sender: FDA-Public Use
  Company Number: 163-20785-05070128

PATIENT

DRUGS (3)
  1. THALOMID [Suspect]
     Indication: MULTIPLE MYELOMA
     Dosage: 200MG-400MG DAILY STARTING ON DAY 4, ORAL
     Route: 048
     Dates: start: 20030908
  2. GENASENSE [Suspect]
     Indication: MULTIPLE MYELOMA
     Dosage: 5MG/KG/DAY ON DAYS 1-7, 22-28 AND 43-49, INTRAVENOUS DRIP
     Route: 041
     Dates: start: 20030905
  3. DEXAMETHASONE [Suspect]
     Indication: MULTIPLE MYELOMA
     Dosage: 40 MG ON DAYS 4-7, 25-28 AND 46-49, ORAL
     Route: 048
     Dates: start: 20030908

REACTIONS (3)
  - GRANULOCYTE COUNT DECREASED [None]
  - NEUTROPHIL COUNT DECREASED [None]
  - WHITE BLOOD CELL COUNT DECREASED [None]
